FAERS Safety Report 5305251-X (Version None)
Quarter: 2007Q2

REPORT INFORMATION
  Report Type: 
  Country: None (occurrence: None)
  Receive Date: 20070424
  Receipt Date: 20070410
  Transmission Date: 20071010
  Serious: Yes (Disabling)
  Sender: FDA-Public Use
  Company Number: PHHO2007VE06488

PATIENT
  Age: 38 Year
  Sex: Female

DRUGS (5)
  1. ZELMAC / HTF 919A [Suspect]
     Indication: CONSTIPATION
     Dosage: NO TREATMENT
  2. ZELMAC / HTF 919A [Suspect]
     Dosage: IRREGULAR DOSE
     Route: 048
     Dates: end: 20070403
  3. ZELMAC / HTF 919A [Suspect]
     Dosage: 6 MG, BID
     Route: 048
     Dates: start: 20060901
  4. DICETEL [Concomitant]
  5. PARIET [Concomitant]

REACTIONS (6)
  - DIARRHOEA [None]
  - FEELING ABNORMAL [None]
  - HOT FLUSH [None]
  - HYPOTENSION [None]
  - NAUSEA [None]
  - SYNCOPE [None]
